FAERS Safety Report 9594621 (Version 1)
Quarter: 2013Q3

REPORT INFORMATION
  Report Type: Spontaneous
  Country: US (occurrence: None)
  Receive Date: 20130927
  Receipt Date: 20130927
  Transmission Date: 20140515
  Serious: No
  Sender: FDA-Public Use
  Company Number: CABO-13002856

PATIENT
  Age: 64 Year
  Sex: Male
  Weight: 115.4 kg

DRUGS (3)
  1. COMETRIQ [Suspect]
     Indication: THYROID CANCER
     Route: 048
     Dates: start: 20130125, end: 20130409
  2. SYNTHROID (LEVOTHYROXINE SODIUM0 [Concomitant]
  3. DIOVAN (VALSARTAN) [Concomitant]

REACTIONS (1)
  - Surgery [None]
